FAERS Safety Report 22235657 (Version 10)
Quarter: 2024Q2

REPORT INFORMATION
  Report Type: Spontaneous
  Country: US (occurrence: US)
  Receive Date: 20230420
  Receipt Date: 20240614
  Transmission Date: 20240716
  Serious: Yes (Other)
  Sender: FDA-Public Use
  Company Number: US-BRISTOL-MYERS SQUIBB COMPANY-2023-053839

PATIENT
  Age: 74 Year
  Sex: Male

DRUGS (2)
  1. REVLIMID [Suspect]
     Active Substance: LENALIDOMIDE
     Indication: Plasma cell myeloma
     Dosage: QD FOR 21 DAYS ON 7 DAYS OFF, ALSO REPORTED AS DAILY
     Route: 048
     Dates: start: 20230310
  2. DEXAMETHASONE [Concomitant]
     Active Substance: DEXAMETHASONE
     Indication: Product used for unknown indication
     Dosage: TAPERED DOWN

REACTIONS (11)
  - Urinary retention [Unknown]
  - Constipation [Unknown]
  - Fatigue [Unknown]
  - Oedema peripheral [Unknown]
  - Urinary tract infection [Unknown]
  - Muscle spasms [Unknown]
  - Product dose omission issue [Unknown]
  - Oedema [Unknown]
  - Visual impairment [Unknown]
  - Platelet count decreased [Unknown]
  - Increased tendency to bruise [Unknown]

NARRATIVE: CASE EVENT DATE: 20230319
